FAERS Safety Report 6462111-9 (Version None)
Quarter: 2009Q4

REPORT INFORMATION
  Report Type: 
  Country: None (occurrence: None)
  Receive Date: 20091130
  Receipt Date: 20091120
  Transmission Date: 20100525
  Serious: Yes (Other)
  Sender: FDA-Public Use
  Company Number: GXKR2009US12681

PATIENT
  Age: 56 Year
  Sex: Male

DRUGS (3)
  1. DEXAMETHASONE (NGX) [Suspect]
     Indication: MULTIPLE MYELOMA
     Route: 065
  2. THALIDOMIDE [Suspect]
     Indication: MULTIPLE MYELOMA
     Route: 065
  3. ACETYLSALICYLIC ACID [Concomitant]
     Route: 065

REACTIONS (6)
  - DYSPNOEA [None]
  - PULMONARY ARTERIAL PRESSURE INCREASED [None]
  - PULMONARY EMBOLISM [None]
  - TACHYCARDIA [None]
  - THROMBECTOMY [None]
  - VENTRICULAR HYPOKINESIA [None]
